FAERS Safety Report 7440950-5 (Version None)
Quarter: 2011Q2

REPORT INFORMATION
  Report Type: 
  Country: None (occurrence: None)
  Receive Date: 20110427
  Receipt Date: 20110420
  Transmission Date: 20111010
  Serious: Yes (Other)
  Sender: FDA-Public Use
  Company Number: PHHO2011US03927

PATIENT
  Sex: Female
  Weight: 77.4 kg

DRUGS (6)
  1. TEMOZOLOMIDE [Suspect]
     Dosage: UNK
     Route: 048
     Dates: start: 20090910
  2. AFINITOR [Suspect]
     Dosage: UNK
     Route: 048
     Dates: start: 20090625, end: 20090820
  3. AFINITOR [Suspect]
     Dosage: UNK
     Route: 048
     Dates: start: 20090910
  4. AFINITOR [Suspect]
     Indication: PANCREATIC CARCINOMA METASTATIC
     Dosage: UNK
     Route: 048
     Dates: start: 20090522, end: 20090618
  5. TEMOZOLOMIDE [Suspect]
     Indication: PANCREATIC CARCINOMA METASTATIC
     Dosage: UNK
     Route: 048
     Dates: start: 20090522, end: 20090618
  6. TEMOZOLOMIDE [Suspect]
     Dosage: UNK
     Route: 048
     Dates: start: 20090625, end: 20090820

REACTIONS (4)
  - LYMPHOPENIA [None]
  - NAUSEA [None]
  - MUCOSAL INFLAMMATION [None]
  - HYPERKALAEMIA [None]
